FAERS Safety Report 13448741 (Version 1)
Quarter: 2017Q2

REPORT INFORMATION
  Report Type: Spontaneous
  Country: HR (occurrence: HR)
  Receive Date: 20170417
  Receipt Date: 20170417
  Transmission Date: 20170830
  Serious: Yes (Other)
  Sender: FDA-Public Use
  Company Number: HR-TEVA-759417ISR

PATIENT
  Age: 80 Year
  Sex: Female

DRUGS (8)
  1. MAPROTILINE [Concomitant]
     Active Substance: MAPROTILINE
     Indication: INSOMNIA
     Route: 048
  2. CLONAZEPAM. [Concomitant]
     Active Substance: CLONAZEPAM
     Route: 048
  3. MAPROTILINE [Concomitant]
     Active Substance: MAPROTILINE
     Indication: ANXIETY
     Route: 048
  4. BUDESONIDE;FORMOTEROL [Concomitant]
     Route: 055
  5. CODEIN [Concomitant]
     Active Substance: CODEINE
     Route: 048
  6. ROSUVASTATIN. [Suspect]
     Active Substance: ROSUVASTATIN
     Indication: ISCHAEMIC STROKE
     Route: 048
  7. PANTOPRAZOL [Concomitant]
     Active Substance: PANTOPRAZOLE SODIUM
     Route: 048
  8. CLOPIDOGREL [Interacting]
     Active Substance: CLOPIDOGREL BISULFATE
     Indication: ISCHAEMIC STROKE
     Route: 065

REACTIONS (2)
  - Rhabdomyolysis [Recovered/Resolved]
  - Drug interaction [Recovered/Resolved]
